FAERS Safety Report 4889931-6 (Version None)
Quarter: 2006Q1

REPORT INFORMATION
  Report Type: 
  Country: None (occurrence: None)
  Receive Date: 20060123
  Receipt Date: 20060123
  Transmission Date: 20060701
  Serious: Yes (Hospitalization)
  Sender: FDA-Public Use
  Company Number: None

PATIENT
  Age: 77 Year
  Sex: Female
  Weight: 93.8946 kg

DRUGS (11)
  1. RITUXIMAB [Suspect]
     Indication: RHEUMATOID ARTHRITIS
     Dosage: 1 GM, DAY 1+ 15 , IV
     Route: 042
     Dates: start: 20050715
  2. RITUXIMAB [Suspect]
     Indication: RHEUMATOID ARTHRITIS
     Dosage: 1 GM, DAY 1+ 15 , IV
     Route: 042
     Dates: start: 20050805
  3. METHOTREXATE [Concomitant]
  4. PREDNISONE [Concomitant]
  5. MOBIC [Concomitant]
  6. LUMIGAN EYE DROPS [Concomitant]
  7. ISTALOL [Concomitant]
  8. DITROPAN [Concomitant]
  9. FOSAMAX [Concomitant]
  10. CALTRATE D [Concomitant]
  11. FOLIC ACID [Concomitant]

REACTIONS (4)
  - CONTUSION [None]
  - DEEP VEIN THROMBOSIS [None]
  - FALL [None]
  - LIMB INJURY [None]
